FAERS Safety Report 5292336-X (Version None)
Quarter: 2007Q2

REPORT INFORMATION
  Report Type: 
  Country: None (occurrence: None)
  Receive Date: 20070410
  Receipt Date: 20070330
  Transmission Date: 20071010
  Serious: Yes (Hospitalization)
  Sender: FDA-Public Use
  Company Number: IT-ROCHE-489461

PATIENT
  Age: 71 Year
  Sex: Female

DRUGS (2)
  1. XELODA [Suspect]
     Dosage: STRENGHT REPORTED AS UNK MG.
     Route: 048
  2. XELODA [Suspect]
     Route: 048

REACTIONS (2)
  - BLOOD GLUCOSE INCREASED [None]
  - DIARRHOEA [None]
